FAERS Safety Report 9691401 (Version 1)
Quarter: 2013Q4

REPORT INFORMATION
  Report Type: Spontaneous
  Country: FR (occurrence: FR)
  Receive Date: 20131115
  Receipt Date: 20131115
  Transmission Date: 20140711
  Serious: Yes (Hospitalization)
  Sender: FDA-Public Use
  Company Number: FR-PFIZER INC-2013323166

PATIENT
  Age: 74 Year
  Sex: Female

DRUGS (12)
  1. ALDACTONE [Suspect]
     Dosage: UNK
     Route: 048
     Dates: start: 20121108, end: 20121127
  2. TAHOR [Suspect]
     Dosage: UNK
     Route: 048
     Dates: end: 20121127
  3. INEXIUM [Suspect]
     Dosage: UNK
     Route: 048
     Dates: end: 20121127
  4. ATARAX [Concomitant]
     Dosage: UNK
  5. CARDENSIEL [Concomitant]
     Dosage: UNK
     Dates: start: 20121114
  6. DIFFU K [Concomitant]
  7. KARDEGIC [Concomitant]
  8. LASILIX [Concomitant]
  9. PLAVIX [Concomitant]
  10. RAMIPRIL [Concomitant]
     Dosage: UNK
     Dates: start: 20121120
  11. ARIXTRA [Concomitant]
     Indication: ATRIAL FIBRILLATION
     Dosage: 7.5 MG, 1X/DAY
     Route: 058
  12. DEXERYL ^PIERRE FABRE^ [Concomitant]
     Dosage: UNK

REACTIONS (3)
  - Rash maculo-papular [Recovered/Resolved]
  - Blister [Recovered/Resolved]
  - Eosinophilia [Recovering/Resolving]
